FAERS Safety Report 23026133 (Version 2)
Quarter: 2023Q4

REPORT INFORMATION
  Report Type: Spontaneous
  Country: US (occurrence: US)
  Receive Date: 20231004
  Receipt Date: 20231102
  Transmission Date: 20240109
  Serious: Yes (Other)
  Sender: FDA-Public Use
  Company Number: US-AMGEN-USASP2023173508

PATIENT
  Age: 37 Year
  Sex: Female
  Weight: 72.562 kg

DRUGS (9)
  1. AIMOVIG [Suspect]
     Active Substance: ERENUMAB-AOOE
     Indication: Product used for unknown indication
     Dosage: 140 MILLIGRAM, QMO
     Route: 065
  2. ZYRTEC [Concomitant]
     Active Substance: CETIRIZINE HYDROCHLORIDE
     Dosage: 10 MILLIGRAM
  3. SOLARAZE [Concomitant]
     Active Substance: DICLOFENAC SODIUM
     Dosage: UNK UNK, AS NECESSARY
     Route: 061
  4. ANTIVERT [Concomitant]
     Active Substance: MECLIZINE HYDROCHLORIDE
     Dosage: 25 MILLIGRAM, AS NECESSARY
  5. LIALDA [Concomitant]
     Active Substance: MESALAMINE
     Dosage: 1.2 GRAM, TID
  6. ROBAXIN [Concomitant]
     Active Substance: METHOCARBAMOL
     Dosage: 75 MILLIGRAM, TID X 2 TABLET
  7. PERCOCET [Concomitant]
     Active Substance: ACETAMINOPHEN\OXYCODONE HYDROCHLORIDE
     Dosage: 10-325 MILLIGRAM AS NECESSARY
  8. OXYCONTIN [Concomitant]
     Active Substance: OXYCODONE HYDROCHLORIDE
     Dosage: 20 MILLIGRAM, BID
  9. UBRELVY [Concomitant]
     Active Substance: UBROGEPANT
     Dosage: 100 MILLIGRAM

REACTIONS (15)
  - Arachnoiditis [Unknown]
  - Colitis [Unknown]
  - Vertigo [Unknown]
  - Dizziness [Unknown]
  - Malaise [Unknown]
  - Abdominal pain lower [Unknown]
  - Flank pain [Unknown]
  - Blood urine [Unknown]
  - Decreased appetite [Unknown]
  - Chromaturia [Unknown]
  - Gastrooesophageal reflux disease [Unknown]
  - Back pain [Unknown]
  - Asthenia [Unknown]
  - Head discomfort [Unknown]
  - Fall [Unknown]

NARRATIVE: CASE EVENT DATE: 20230101
